FAERS Safety Report 7313307-5 (Version None)
Quarter: 2011Q1

REPORT INFORMATION
  Report Type: 
  Country: None (occurrence: None)
  Receive Date: 20110225
  Receipt Date: 20101104
  Transmission Date: 20110831
  Serious: No
  Sender: FDA-Public Use
  Company Number: US-MYLANLABS-2010S1017305

PATIENT
  Age: 63 Year
  Sex: Male
  Weight: 119.3 kg

DRUGS (12)
  1. LEVOTHYROXINE [Concomitant]
     Dates: start: 20030101
  2. CRESTOR [Concomitant]
     Dates: start: 20070101
  3. CENTRUM SILVER [Concomitant]
     Dates: start: 19970101
  4. FENOFIBRATE [Concomitant]
     Dates: start: 20100622
  5. LISINOPRIL [Concomitant]
     Dates: start: 20101004
  6. OMEPRAZOLE [Concomitant]
     Dosage: QD
     Dates: start: 20070101
  7. AVANDIA [Concomitant]
     Dosage: WHEN NOT USING ACTOS
  8. LEVOTHYROXINE [Concomitant]
  9. ASPIRIN [Concomitant]
     Dates: start: 19970101
  10. METFORMIN HCL [Suspect]
     Indication: TYPE 2 DIABETES MELLITUS
     Dates: start: 20100801, end: 20100917
  11. JANUVIA [Concomitant]
     Indication: DIABETES MELLITUS
     Dates: start: 20070829
  12. ACTOS [Concomitant]
     Indication: DIABETES MELLITUS
     Dosage: OR AVANDIA WHEN NOT USING ACTOS
     Dates: start: 19970101

REACTIONS (4)
  - RETCHING [None]
  - VOMITING [None]
  - BLOOD CREATININE INCREASED [None]
  - NAUSEA [None]
